FAERS Safety Report 6400027-4 (Version None)
Quarter: 2009Q4

REPORT INFORMATION
  Report Type: 
  Country: None (occurrence: None)
  Receive Date: 20091014
  Receipt Date: 20091006
  Transmission Date: 20100525
  Serious: Yes (Hospitalization)
  Sender: FDA-Public Use
  Company Number: A0783806A

PATIENT
  Age: 57 Year
  Sex: Male
  Weight: 122.7 kg

DRUGS (14)
  1. AVANDIA [Suspect]
     Dosage: 8MG PER DAY
     Route: 048
     Dates: start: 20040901, end: 20070403
  2. ALLOPURINOL [Concomitant]
  3. PIROXICAM [Concomitant]
  4. AMBIEN [Concomitant]
  5. GLIMEPIRIDE [Concomitant]
  6. ALTACE [Concomitant]
  7. LOPRESSOR [Concomitant]
  8. LOPID [Concomitant]
  9. NEURONTIN [Concomitant]
  10. GLUCOPHAGE [Concomitant]
  11. NORCO [Concomitant]
  12. NIFEREX [Concomitant]
  13. COLACE [Concomitant]
  14. INSULIN [Concomitant]

REACTIONS (5)
  - CARDIAC FAILURE CONGESTIVE [None]
  - CEREBROVASCULAR ACCIDENT [None]
  - CORONARY ARTERY DISEASE [None]
  - DEPRESSION [None]
  - TRANSIENT ISCHAEMIC ATTACK [None]
